FAERS Safety Report 24343200 (Version 1)
Quarter: 2024Q3

REPORT INFORMATION
  Report Type: Spontaneous
  Country: US (occurrence: None)
  Receive Date: 20240920
  Receipt Date: 20240920
  Transmission Date: 20241016
  Serious: Yes (Hospitalization)
  Sender: Public
  Company Number: None

PATIENT
  Sex: Female
  Weight: 56.5 kg

DRUGS (3)
  1. FLUOROURACIL [Suspect]
     Active Substance: FLUOROURACIL
  2. LEUCOVORIN CALCIUM [Concomitant]
  3. OXALIPLATIN (ELOXATIN) [Concomitant]

REACTIONS (15)
  - Fatigue [None]
  - Nasopharyngitis [None]
  - Hypersensitivity [None]
  - Urinary tract infection [None]
  - Chills [None]
  - Neutrophil count decreased [None]
  - White blood cell count decreased [None]
  - Haemoglobin decreased [None]
  - Blood albumin increased [None]
  - Blood bilirubin increased [None]
  - Cough [None]
  - Dyspnoea [None]
  - Nasal congestion [None]
  - Upper respiratory tract infection [None]
  - Treatment delayed [None]

NARRATIVE: CASE EVENT DATE: 20240903
